FAERS Safety Report 9879667 (Version 1)
Quarter: 2014Q1

REPORT INFORMATION
  Report Type: Spontaneous
  Country: DK (occurrence: DE)
  Receive Date: 20140206
  Receipt Date: 20140206
  Transmission Date: 20141002
  Serious: Yes (Congenital Anomaly)
  Sender: FDA-Public Use
  Company Number: DE-FRI-1000054006

PATIENT
  Age: 0 None
  Sex: Male
  Weight: 1.6 kg

DRUGS (3)
  1. ESCITALOPRAM [Suspect]
     Indication: DEPRESSION
     Dosage: 20 MG
     Route: 064
     Dates: start: 20090926, end: 20091105
  2. SEROQUEL [Suspect]
     Indication: BORDERLINE PERSONALITY DISORDER
     Dosage: 25 MG
     Route: 064
     Dates: start: 20090926, end: 20091105
  3. MEDIKINET [Suspect]
     Indication: ATTENTION DEFICIT/HYPERACTIVITY DISORDER
     Dosage: 20 MG
     Route: 064
     Dates: start: 20090926, end: 20091105

REACTIONS (5)
  - Haemangioma [Recovered/Resolved with Sequelae]
  - Neonatal respiratory distress syndrome [Recovered/Resolved]
  - Premature baby [Unknown]
  - Low birth weight baby [Unknown]
  - Foetal exposure during pregnancy [Unknown]
